FAERS Safety Report 25090970 (Version 3)
Quarter: 2025Q2

REPORT INFORMATION
  Report Type: Spontaneous
  Country: FR (occurrence: FR)
  Receive Date: 20250318
  Receipt Date: 20250403
  Transmission Date: 20250717
  Serious: Yes (Other)
  Sender: MERCK SHARP AND DOHME
  Company Number: FR-009507513-2257286

PATIENT
  Age: 55 Year

DRUGS (2)
  1. IVERMECTIN [Suspect]
     Active Substance: IVERMECTIN
     Route: 048
  2. PERMETHRIN [Suspect]
     Active Substance: PERMETHRIN

REACTIONS (2)
  - Dermatitis exfoliative generalised [Unknown]
  - Skin exfoliation [Unknown]
